FAERS Safety Report 9026132 (Version 1)
Quarter: 2013Q1

REPORT INFORMATION
  Report Type: Spontaneous
  Country: JP (occurrence: JP)
  Receive Date: 20130123
  Receipt Date: 20130123
  Transmission Date: 20140127
  Serious: Yes (Disabling, Other)
  Sender: FDA-Public Use
  Company Number: JP-SANOFI-AVENTIS-2012SA094346

PATIENT
  Age: 80 Year
  Sex: Male
  Weight: 50.9 kg

DRUGS (5)
  1. ASPIRIN [Suspect]
     Indication: CEREBRAL INFARCTION
     Route: 048
  2. TICLOPIDINE HYDROCHLORIDE [Suspect]
     Indication: CEREBRAL INFARCTION
     Route: 048
     Dates: start: 20111229
  3. PLAVIX [Suspect]
     Indication: CEREBRAL INFARCTION
     Route: 048
     Dates: start: 20111129, end: 20111226
  4. HEPARIN SODIUM [Suspect]
     Indication: PROPHYLAXIS
     Dosage: DOSE:5000 UNIT(S)
     Route: 042
  5. OZAGREL SODIUM [Concomitant]
     Dosage: INFUSION

REACTIONS (4)
  - Muscle haemorrhage [Recovered/Resolved with Sequelae]
  - Anaemia [Recovered/Resolved with Sequelae]
  - Haemorrhage intracranial [Recovered/Resolved]
  - Monoplegia [Unknown]
